FAERS Safety Report 14129461 (Version 4)
Quarter: 2018Q1

REPORT INFORMATION
  Report Type: Spontaneous
  Country: ES (occurrence: ES)
  Receive Date: 20171026
  Receipt Date: 20180123
  Transmission Date: 20180508
  Serious: Yes (Death, Hospitalization, Other)
  Sender: FDA-Public Use
  Company Number: ES-SA-2017SA203843

PATIENT
  Age: 74 Year
  Sex: Male
  Weight: 63 kg

DRUGS (3)
  1. SOLOSTAR [Concomitant]
     Active Substance: DEVICE
     Indication: DIABETES MELLITUS
  2. TOUJEO [Concomitant]
     Active Substance: INSULIN GLARGINE
     Indication: DIABETES MELLITUS
     Route: 058
  3. LANTUS [Suspect]
     Active Substance: INSULIN GLARGINE
     Indication: DIABETES MELLITUS
     Route: 051
     Dates: start: 20171017

REACTIONS (11)
  - Feeding disorder [Unknown]
  - Pancreatic neoplasm [Fatal]
  - Hypoglycaemia [Recovered/Resolved]
  - Vomiting [Unknown]
  - Diarrhoea [Fatal]
  - Nausea [Unknown]
  - Intentional product misuse [Unknown]
  - Weight decreased [Fatal]
  - Blood uric acid increased [Fatal]
  - Metastases to liver [Unknown]
  - Blood potassium decreased [Not Recovered/Not Resolved]
